FAERS Safety Report 6308179-1 (Version None)
Quarter: 2009Q3

REPORT INFORMATION
  Report Type: 
  Country: None (occurrence: None)
  Receive Date: 20090810
  Receipt Date: 20090730
  Transmission Date: 20100115
  Serious: Yes (Hospitalization)
  Sender: FDA-Public Use
  Company Number: 2009-02842

PATIENT
  Age: 80 Year
  Sex: Female
  Weight: 67.3 kg

DRUGS (14)
  1. VELCADE [Suspect]
     Indication: MULTIPLE MYELOMA
     Dosage: 1 MG/M2, INTRAVENOUS
     Route: 042
     Dates: start: 20090330, end: 20090706
  2. MELPHALAN HYDROCHLORIDE [Suspect]
     Indication: MULTIPLE MYELOMA
     Dosage: 6.75 MG/M2, ORAL
     Route: 048
     Dates: start: 20090330, end: 20090702
  3. PREDNISONE [Suspect]
     Indication: MULTIPLE MYELOMA
     Dosage: 60 MG/M2, ORAL
     Route: 048
     Dates: start: 20090330, end: 20090702
  4. PREMPRO [Concomitant]
  5. EXTRA STRENGTH TYLENOL [Concomitant]
  6. SIMVASTATIN [Concomitant]
  7. LOVAZA [Concomitant]
  8. CITRACAL + D (ERGOCALCIFEROL, CALCIUM CITRATE) [Concomitant]
  9. TOPROL-XL [Concomitant]
  10. LEVOTHYROXINE SODIUM [Concomitant]
  11. COLACE (DOCUSATE SODIUM) [Concomitant]
  12. TYLENOL PM (DIPHENHYDRAMINE, PARACETAMOL) [Concomitant]
  13. VITAEYES [Concomitant]
  14. PERIDEX (CHLORHEXIDINE GLUCONATE) [Concomitant]

REACTIONS (9)
  - ANGIOGRAM ABNORMAL [None]
  - DIZZINESS [None]
  - FACE INJURY [None]
  - FLUID INTAKE REDUCED [None]
  - LOSS OF CONSCIOUSNESS [None]
  - NEUROPATHY PERIPHERAL [None]
  - ORTHOSTATIC HYPOTENSION [None]
  - SYNCOPE [None]
  - THROMBOCYTOPENIA [None]
